FAERS Safety Report 4490130-0 (Version None)
Quarter: 2004Q4

REPORT INFORMATION
  Report Type: 
  Country: None (occurrence: None)
  Receive Date: 20041028
  Receipt Date: 20041019
  Transmission Date: 20050328
  Serious: Yes (Other)
  Sender: FDA-Public Use
  Company Number: 2004062018

PATIENT
  Age: 76 Year
  Sex: Male
  Weight: 96.1626 kg

DRUGS (6)
  1. ACCUPRIL [Suspect]
     Indication: HYPERTENSION
     Dosage: 10 MG (10 MG, 1 IN 1 D), ORAL
     Route: 048
     Dates: start: 20040101
  2. BENADRYL [Suspect]
     Indication: PRURITUS
     Dosage: 1 IN 1 D, INTRAVENOUS
     Route: 042
     Dates: start: 20040830
  3. ASPIRIN [Concomitant]
  4. FINASTERIDE [Concomitant]
  5. TERAZOSIN HYDROCHLORIDE (TERAZOSINE HYDROCHLORIDE) [Concomitant]
  6. ACETAMINOPHEN [Concomitant]

REACTIONS (5)
  - ARTHROPOD STING [None]
  - BLOOD PRESSURE DIASTOLIC DECREASED [None]
  - BLOOD PRESSURE SYSTOLIC INCREASED [None]
  - DEHYDRATION [None]
  - LOSS OF CONSCIOUSNESS [None]
